FAERS Safety Report 7081579-0 (Version None)
Quarter: 2010Q4

REPORT INFORMATION
  Report Type: 
  Country: None (occurrence: None)
  Receive Date: 20101103
  Receipt Date: 20101101
  Transmission Date: 20110411
  Serious: Yes (Other)
  Sender: FDA-Public Use
  Company Number: US-BRISTOL-MYERS SQUIBB COMPANY-15361306

PATIENT
  Age: 91 Year
  Sex: Male

DRUGS (1)
  1. COUMADIN [Suspect]
     Indication: ARTERIOSCLEROSIS
     Dosage: RECEIVED FOR FEW YRS

REACTIONS (2)
  - SLEEP DISORDER [None]
  - SUICIDAL IDEATION [None]
